FAERS Safety Report 9963065 (Version 1)
Quarter: 2014Q1

REPORT INFORMATION
  Report Type: Spontaneous
  Country: US (occurrence: US)
  Receive Date: 20140305
  Receipt Date: 20140305
  Transmission Date: 20141002
  Serious: No
  Sender: FDA-Public Use
  Company Number: US-BAXTER-2014BAX010506

PATIENT
  Age: 46 Year
  Sex: Female

DRUGS (2)
  1. DIANEAL LOW CALCIUM (ULTRABAG) [Suspect]
     Indication: PERITONEAL DIALYSIS
     Route: 033
     Dates: start: 20140129
  2. DIANEAL LOW CALCIUM (ULTRABAG) [Suspect]
     Indication: PERITONEAL DIALYSIS
     Route: 033
     Dates: start: 20140129

REACTIONS (1)
  - Blood pressure increased [Not Recovered/Not Resolved]
